FAERS Safety Report 5839890-4 (Version None)
Quarter: 2008Q3

REPORT INFORMATION
  Report Type: 
  Country: None (occurrence: None)
  Receive Date: 20080807
  Receipt Date: 20080731
  Transmission Date: 20090109
  Serious: Yes (Hospitalization)
  Sender: FDA-Public Use
  Company Number: 2008AL009003

PATIENT
  Age: 65 Year
  Sex: Female
  Weight: 63.9572 kg

DRUGS (1)
  1. DIGOXIN [Suspect]
     Indication: CARDIAC DISORDER
     Dosage: 0.125MG DAILY PO
     Route: 048

REACTIONS (5)
  - FEELING ABNORMAL [None]
  - FEELING JITTERY [None]
  - HYPOTENSION [None]
  - MALAISE [None]
  - NAUSEA [None]
